FAERS Safety Report 11823886 (Version 1)
Quarter: 2015Q4

REPORT INFORMATION
  Report Type: Report from Study
  Country: US (occurrence: US)
  Receive Date: 20151124
  Receipt Date: 20151124
  Transmission Date: 20160305
  Serious: Yes (Other)
  Sender: FDA-Public Use
  Company Number: US-BAXALTA-2015BLT002839

PATIENT
  Age: 41 Year
  Sex: Female

DRUGS (1)
  1. HYQVIA [Suspect]
     Active Substance: HUMAN IMMUNOGLOBULIN G\HYALURONIDASE RECOMBINANT HUMAN
     Indication: HYPOGAMMAGLOBULINAEMIA
     Dosage: 5 G, 1X A WEEK  RAMP UP
     Route: 058
     Dates: start: 20151113, end: 20151113

REACTIONS (1)
  - Vulvovaginal mycotic infection [Unknown]

NARRATIVE: CASE EVENT DATE: 20151114
